FAERS Safety Report 5528369-5 (Version None)
Quarter: 2007Q4

REPORT INFORMATION
  Report Type: 
  Country: None (occurrence: None)
  Receive Date: 20071128
  Receipt Date: 20071120
  Transmission Date: 20080405
  Serious: Yes (Hospitalization)
  Sender: FDA-Public Use
  Company Number: US-GENENTECH-247173

PATIENT
  Age: 71 Year
  Sex: Male
  Weight: 73 kg

DRUGS (14)
  1. BEVACIZUMAB [Suspect]
     Indication: RENAL CELL CARCINOMA STAGE UNSPECIFIED
     Dosage: 5 MG/KG, Q2W
     Route: 042
     Dates: start: 20061019, end: 20070726
  2. BAY 43-9006 [Suspect]
     Indication: RENAL CELL CARCINOMA STAGE UNSPECIFIED
     Dosage: 200 MG, UNK
     Route: 048
     Dates: start: 20061019, end: 20070726
  3. NEXIUM [Concomitant]
     Indication: DRUG USE FOR UNKNOWN INDICATION
  4. VASOTEC [Concomitant]
     Indication: DRUG USE FOR UNKNOWN INDICATION
  5. LOMOTIL [Concomitant]
     Indication: DRUG USE FOR UNKNOWN INDICATION
  6. FLONASE [Concomitant]
     Indication: DRUG USE FOR UNKNOWN INDICATION
  7. PHENERGAN HCL [Concomitant]
  8. IMODIUM [Concomitant]
     Indication: DRUG USE FOR UNKNOWN INDICATION
  9. NITROGLYCERIN [Concomitant]
     Indication: DRUG USE FOR UNKNOWN INDICATION
  10. VALIUM [Concomitant]
     Indication: DRUG USE FOR UNKNOWN INDICATION
  11. VIAGRA [Concomitant]
     Indication: DRUG USE FOR UNKNOWN INDICATION
  12. ATENOLOL [Concomitant]
     Indication: HYPERTENSION
  13. HYZAAR [Concomitant]
     Indication: HYPERTENSION
  14. ASPIRIN [Concomitant]
     Indication: DRUG USE FOR UNKNOWN INDICATION

REACTIONS (1)
  - MYOCARDIAL INFARCTION [None]
